FAERS Safety Report 24353139 (Version 1)
Quarter: 2024Q3

REPORT INFORMATION
  Report Type: Spontaneous
  Country: CA (occurrence: CA)
  Receive Date: 20240923
  Receipt Date: 20240923
  Transmission Date: 20241017
  Serious: Yes (Hospitalization, Other)
  Sender: PFIZER
  Company Number: CA-PFIZER INC-202300249364

PATIENT
  Age: 63 Year
  Sex: Female

DRUGS (5)
  1. XELJANZ [Suspect]
     Active Substance: TOFACITINIB CITRATE
     Indication: Colitis ulcerative
     Dosage: 10 MG, 2X/DAY, MAINTENANCE DOSE: 5MG TWICE DAILY
     Route: 048
     Dates: start: 20230707, end: 2024
  2. XELJANZ [Suspect]
     Active Substance: TOFACITINIB CITRATE
     Dosage: 5 MG, 2X/DAY
     Route: 048
  3. XELJANZ [Suspect]
     Active Substance: TOFACITINIB CITRATE
     Dosage: 10 MG, 2X/DAY
     Route: 048
     Dates: start: 2024, end: 2024
  4. ENTOCORT [Concomitant]
     Active Substance: BUDESONIDE
     Dosage: 1 DF
  5. PREDNISONE [Concomitant]
     Active Substance: PREDNISONE
     Dosage: UNK, TAPER

REACTIONS (23)
  - Condition aggravated [Unknown]
  - Colectomy [Unknown]
  - Skin cancer [Unknown]
  - Drug ineffective [Unknown]
  - Anxiety [Not Recovered/Not Resolved]
  - Dry mouth [Not Recovered/Not Resolved]
  - Constipation [Not Recovered/Not Resolved]
  - Fatigue [Not Recovered/Not Resolved]
  - Dizziness [Not Recovered/Not Resolved]
  - Throat irritation [Not Recovered/Not Resolved]
  - Dry throat [Not Recovered/Not Resolved]
  - Cough [Not Recovered/Not Resolved]
  - Oropharyngeal pain [Recovering/Resolving]
  - Skin lesion [Unknown]
  - Asthenia [Unknown]
  - Respiratory disorder [Recovering/Resolving]
  - Dehydration [Unknown]
  - Lethargy [Unknown]
  - Cheilitis [Not Recovered/Not Resolved]
  - Lip swelling [Not Recovered/Not Resolved]
  - Lip blister [Not Recovered/Not Resolved]
  - Lip pain [Not Recovered/Not Resolved]
  - Stress [Unknown]

NARRATIVE: CASE EVENT DATE: 20230101
